FAERS Safety Report 9790662 (Version 1)
Quarter: 2013Q4

REPORT INFORMATION
  Report Type: Spontaneous
  Country: JP (occurrence: JP)
  Receive Date: 20131231
  Receipt Date: 20131231
  Transmission Date: 20140711
  Serious: Yes (Other)
  Sender: FDA-Public Use
  Company Number: JP-GLAXOSMITHKLINE-B0876743A

PATIENT
  Age: 44 Year
  Sex: Male

DRUGS (12)
  1. LAMICTAL [Suspect]
     Indication: BIPOLAR DISORDER
     Dosage: 25MG PER DAY
     Route: 048
     Dates: start: 20121022
  2. LAMICTAL [Suspect]
     Indication: BIPOLAR DISORDER
     Dosage: 25MG TWICE PER DAY
     Route: 048
     Dates: start: 20121029
  3. LAMICTAL [Suspect]
     Indication: BIPOLAR DISORDER
     Dosage: 25MG THREE TIMES PER DAY
     Route: 048
     Dates: start: 20121112
  4. LIMAS [Concomitant]
     Indication: BIPOLAR I DISORDER
     Dosage: 100MG TWICE PER DAY
     Route: 048
     Dates: start: 20120820
  5. LIMAS [Concomitant]
     Indication: BIPOLAR I DISORDER
     Dosage: 150MG TWICE PER DAY
     Route: 048
     Dates: start: 20121210
  6. LIMAS [Concomitant]
     Indication: BIPOLAR I DISORDER
     Dosage: 200MG TWICE PER DAY
     Route: 048
     Dates: start: 20121217
  7. LIMAS [Concomitant]
     Indication: BIPOLAR I DISORDER
     Dosage: 300MG TWICE PER DAY
     Route: 048
     Dates: start: 20130212
  8. LIMAS [Concomitant]
     Indication: BIPOLAR I DISORDER
     Dosage: 400MG TWICE PER DAY
     Route: 048
     Dates: start: 20130225
  9. LENDORMIN D [Concomitant]
     Indication: INSOMNIA
     Dosage: .5MG PER DAY
     Route: 048
     Dates: start: 20120820
  10. WYPAX [Concomitant]
     Indication: ANXIETY
     Dosage: .5MG PER DAY
     Route: 048
     Dates: start: 20121024
  11. MUCODYNE [Concomitant]
     Indication: COUGH
     Dosage: 500MG THREE TIMES PER DAY
     Route: 048
     Dates: start: 20120924, end: 20121104
  12. TRANCOLON [Concomitant]
     Indication: DIARRHOEA
     Dosage: 7.5MG THREE TIMES PER DAY
     Route: 048
     Dates: start: 20121022, end: 20121104

REACTIONS (4)
  - Mania [Recovered/Resolved]
  - Cough [Unknown]
  - Diarrhoea [Unknown]
  - Irritability [Unknown]
